FAERS Safety Report 7305345-3 (Version None)
Quarter: 2011Q1

REPORT INFORMATION
  Report Type: 
  Country: None (occurrence: None)
  Receive Date: 20110210
  Receipt Date: 20110127
  Transmission Date: 20110831
  Serious: Yes (Congenital Anomaly)
  Sender: FDA-Public Use
  Company Number: 022159

PATIENT
  Sex: Male
  Weight: 2.7 kg

DRUGS (6)
  1. DEPAKINE CHRONO /01294701/ (DEPAKINE CHRONO) (NOT SPECIFIED) [Suspect]
     Indication: EPILEPSY
     Dosage: 500 MG BID TRANSPLACENTAL
     Route: 064
     Dates: end: 20100501
  2. CIPROFLOXACIN HCL [Concomitant]
  3. KEPPRA [Suspect]
     Indication: EPILEPSY
     Dosage: (TRANSPLACENTAL) (TRANSPLACENTAL)
     Route: 064
     Dates: end: 20100501
  4. KEPPRA [Suspect]
     Indication: EPILEPSY
     Dosage: (TRANSPLACENTAL) (TRANSPLACENTAL)
     Route: 064
     Dates: start: 20100101
  5. URBANYL (URBANYL) (NOT SPECIFIED) [Suspect]
     Indication: EPILEPSY
     Dosage: 500 MG TRANSPLACENTAL
     Route: 064
     Dates: end: 20100501
  6. DONORMYL /00886901/ (DONORMYL) [Suspect]
     Indication: POISONING DELIBERATE
     Dosage: 150 MG TRANSPLACENTAL
     Route: 064
     Dates: start: 20100522, end: 20100522

REACTIONS (3)
  - MATERNAL DRUGS AFFECTING FOETUS [None]
  - EAR MALFORMATION [None]
  - CONGENITAL RENAL DISORDER [None]
